FAERS Safety Report 4385592-3 (Version None)
Quarter: 2004Q2

REPORT INFORMATION
  Report Type: 
  Country: None (occurrence: None)
  Receive Date: 20040628
  Receipt Date: 20040618
  Transmission Date: 20050107
  Serious: Yes (Other)
  Sender: FDA-Public Use
  Company Number: PHEH2004US06685

PATIENT
  Age: 50 Year
  Sex: Male

DRUGS (1)
  1. LAMISIL [Suspect]
     Route: 048
     Dates: start: 20040604

REACTIONS (11)
  - ABSCESS [None]
  - EOSINOPHIL COUNT DECREASED [None]
  - FATIGUE [None]
  - GLOBULINS INCREASED [None]
  - INFECTION [None]
  - MONOCYTE COUNT DECREASED [None]
  - MUSCLE CRAMP [None]
  - NEUTROPHIL COUNT INCREASED [None]
  - PAIN [None]
  - PROTEIN TOTAL INCREASED [None]
  - WHITE BLOOD CELL COUNT INCREASED [None]
